FAERS Safety Report 4748841-5 (Version None)
Quarter: 2005Q3

REPORT INFORMATION
  Report Type: 
  Country: None (occurrence: None)
  Receive Date: 20050819
  Receipt Date: 20050411
  Transmission Date: 20060218
  Serious: Yes (Other)
  Sender: FDA-Public Use
  Company Number: US-GLAXOSMITHKLINE-A0553617A

PATIENT
  Age: 44 Year
  Sex: Female

DRUGS (10)
  1. PAXIL CR [Suspect]
     Indication: DEPRESSION
     Dosage: 25MG TWICE PER DAY
     Route: 048
  2. PREVACID [Concomitant]
  3. CLONAZEPAM [Concomitant]
  4. NEURONTIN [Concomitant]
  5. DITROPAN [Concomitant]
  6. TRAZODONE [Concomitant]
  7. TRAMADOL HCL [Concomitant]
  8. MIDRIN [Concomitant]
  9. NASAL SPRAY [Concomitant]
  10. STEROIDS [Concomitant]

REACTIONS (41)
  - ABNORMAL DREAMS [None]
  - ALOPECIA [None]
  - BACK PAIN [None]
  - BLOOD PRESSURE FLUCTUATION [None]
  - CHILLS [None]
  - CONSTIPATION [None]
  - COORDINATION ABNORMAL [None]
  - COUGH [None]
  - DEPRESSION [None]
  - DIARRHOEA [None]
  - DIZZINESS [None]
  - DRY MOUTH [None]
  - DYSPHAGIA [None]
  - DYSURIA [None]
  - EAR DISORDER [None]
  - EYELID PTOSIS [None]
  - FATIGUE [None]
  - FLATULENCE [None]
  - HAEMATOCHEZIA [None]
  - HEADACHE [None]
  - HEART RATE INCREASED [None]
  - HOT FLUSH [None]
  - HYPERHIDROSIS [None]
  - HYPOAESTHESIA [None]
  - LIBIDO DECREASED [None]
  - LYMPHADENOPATHY [None]
  - MEMORY IMPAIRMENT [None]
  - MUSCLE CONTRACTIONS INVOLUNTARY [None]
  - MUSCLE SPASMS [None]
  - MUSCULOSKELETAL PAIN [None]
  - NOCTURIA [None]
  - OEDEMA PERIPHERAL [None]
  - PARAESTHESIA [None]
  - PHOTOSENSITIVITY REACTION [None]
  - SALIVARY HYPERSECRETION [None]
  - SLEEP DISORDER [None]
  - SWELLING FACE [None]
  - TREMOR [None]
  - URINARY INCONTINENCE [None]
  - URINARY TRACT INFECTION [None]
  - WEIGHT INCREASED [None]
